FAERS Safety Report 9615954 (Version 1)
Quarter: 2013Q4

REPORT INFORMATION
  Report Type: Spontaneous
  Country: US (occurrence: None)
  Receive Date: 20131010
  Receipt Date: 20131010
  Transmission Date: 20140711
  Serious: Yes (Other)
  Sender: FDA-Public Use
  Company Number: None

PATIENT
  Age: 57 Year
  Sex: Female
  Weight: 53.52 kg

DRUGS (2)
  1. SULFAMETHOXAZOLE-TMP [Suspect]
     Indication: SINUS DISORDER
     Dosage: 1 TAB
     Dates: start: 20131006, end: 20131008
  2. SULFAMETHOXAZOLE-TMP [Suspect]
     Indication: STAPHYLOCOCCAL INFECTION
     Dosage: 1 TAB
     Dates: start: 20131006, end: 20131008

REACTIONS (9)
  - Dyspnoea [None]
  - Wheezing [None]
  - Hypersensitivity [None]
  - Swollen tongue [None]
  - Lip swelling [None]
  - Musculoskeletal pain [None]
  - Chills [None]
  - Asthenia [None]
  - Neck pain [None]
